FAERS Safety Report 11681103 (Version 2)
Quarter: 2015Q4

REPORT INFORMATION
  Report Type: Spontaneous
  Country: US (occurrence: US)
  Receive Date: 20151027
  Receipt Date: 20151104
  Transmission Date: 20160304
  Serious: No
  Sender: FDA-Public Use
  Company Number: US-ELI_LILLY_AND_COMPANY-US201008007155

PATIENT
  Age: 63 Year

DRUGS (12)
  1. CYMBALTA [Concomitant]
     Active Substance: DULOXETINE HYDROCHLORIDE
  2. HYDROCHLOROTHIAZIDE. [Concomitant]
     Active Substance: HYDROCHLOROTHIAZIDE
  3. FOLIC ACID. [Concomitant]
     Active Substance: FOLIC ACID
  4. VITAMIN B COMPLEX [Concomitant]
     Active Substance: CYANOCOBALAMIN\DEXPANTHENOL\NIACINAMIDE\PYRIDOXINE HYDROCHLORIDE\RIBOFLAVIN 5^-PHOSPHATE SODIUM\THIAMINE HYDROCHLORIDE\VITAMIN B COMPLEX
  5. VITAMIN C [Concomitant]
     Active Substance: ASCORBIC ACID
  6. PRENATAL VITAMINS /01549301/ [Concomitant]
     Active Substance: VITAMINS
  7. LYRICA [Concomitant]
     Active Substance: PREGABALIN
  8. LEVOTHYROXINE. [Concomitant]
     Active Substance: LEVOTHYROXINE
  9. VIACTIV /00751501/ [Concomitant]
  10. FORTEO [Suspect]
     Active Substance: TERIPARATIDE
     Dosage: 20 UG, QD
     Dates: end: 201101
  11. LORATADINE. [Concomitant]
     Active Substance: LORATADINE
  12. FORTEO [Suspect]
     Active Substance: TERIPARATIDE
     Indication: OSTEOPOROSIS
     Dosage: 20 UG, QD
     Dates: start: 201003

REACTIONS (6)
  - Tibia fracture [Unknown]
  - Fall [Unknown]
  - Fall [Recovered/Resolved]
  - Injection site bruising [Not Recovered/Not Resolved]
  - Lower limb fracture [Unknown]
  - Migraine [Unknown]

NARRATIVE: CASE EVENT DATE: 201004
